FAERS Safety Report 6987667-9 (Version None)
Quarter: 2010Q3

REPORT INFORMATION
  Report Type: 
  Country: None (occurrence: None)
  Receive Date: 20100916
  Receipt Date: 20100902
  Transmission Date: 20110219
  Serious: Yes (Hospitalization)
  Sender: FDA-Public Use
  Company Number: US-ELI_LILLY_AND_COMPANY-US201009002124

PATIENT
  Sex: Female

DRUGS (18)
  1. FORTEO [Suspect]
     Indication: OSTEOPOROSIS
     Dosage: 20 UG, DAILY (1/D)
     Dates: start: 20100812, end: 20100825
  2. OXYGEN [Concomitant]
     Dosage: 4 LITER, UNK
  3. K-DUR [Concomitant]
     Dosage: 20 MEQ, DAILY (1/D)
  4. ASPIRIN [Concomitant]
     Dosage: 81 MG, DAILY (1/D)
  5. LASIX [Concomitant]
     Dosage: 40 MG, DAILY (1/D)
  6. PROZAC [Concomitant]
     Dosage: 20 MG, DAILY (1/D)
  7. LUMIGAN [Concomitant]
  8. PENTOXIFYLLINE [Concomitant]
     Dosage: 400 MG, 3/D
  9. PROTONIX [Concomitant]
     Dosage: 20 MG, DAILY (1/D)
  10. ISOSORBIDE [Concomitant]
     Dosage: UNK, 2/D
  11. LORAZEPAM [Concomitant]
     Dosage: UNK, AS NEEDED
  12. PREDNISONE [Concomitant]
     Dosage: 10 MG, UNK
  13. COMBIVENT [Concomitant]
  14. ALBUTEROL [Concomitant]
     Dosage: UNK, AS NEEDED
  15. CALCIUM [Concomitant]
  16. MULTI-VITAMIN [Concomitant]
  17. FIBER [Concomitant]
  18. IRON [Concomitant]

REACTIONS (2)
  - BACTERIAL INFECTION [None]
  - LUNG DISORDER [None]
